FAERS Safety Report 13839990 (Version 1)
Quarter: 2017Q3

REPORT INFORMATION
  Report Type: Spontaneous
  Country: HR (occurrence: HR)
  Receive Date: 20170807
  Receipt Date: 20170807
  Transmission Date: 20171127
  Serious: Yes (Other)
  Sender: FDA-Public Use
  Company Number: HR-TEVA-791609ACC

PATIENT
  Age: 46 Year
  Sex: Male

DRUGS (3)
  1. HEPTANON [Suspect]
     Active Substance: METHADONE HYDROCHLORIDE
     Route: 048
  2. ZALDIAR [Suspect]
     Active Substance: ACETAMINOPHEN\TRAMADOL HYDROCHLORIDE
     Route: 048
  3. IBUPROFEN PLIVA [Suspect]
     Active Substance: IBUPROFEN
     Route: 048

REACTIONS (7)
  - Somnolence [Unknown]
  - Liver injury [Unknown]
  - Muscle injury [Unknown]
  - Drug abuse [Unknown]
  - Alanine aminotransferase increased [Unknown]
  - Aspartate aminotransferase increased [Unknown]
  - Blood creatine phosphokinase increased [Unknown]

NARRATIVE: CASE EVENT DATE: 20170529
